FAERS Safety Report 25478306 (Version 1)
Quarter: 2025Q2

REPORT INFORMATION
  Report Type: Spontaneous
  Country: US (occurrence: US)
  Receive Date: 20250625
  Receipt Date: 20250625
  Transmission Date: 20250717
  Serious: No
  Sender: PFIZER
  Company Number: US-PFIZER INC-202500127839

PATIENT

DRUGS (1)
  1. RITLECITINIB [Suspect]
     Active Substance: RITLECITINIB
     Indication: Vitiligo

REACTIONS (2)
  - Urticaria [Unknown]
  - Off label use [Unknown]
